FAERS Safety Report 6291530-9 (Version None)
Quarter: 2009Q3

REPORT INFORMATION
  Report Type: 
  Country: None (occurrence: None)
  Receive Date: 20090730
  Receipt Date: 20090718
  Transmission Date: 20100115
  Serious: Yes (Other)
  Sender: FDA-Public Use
  Company Number: HR-MYLANLABS-2009S1012843

PATIENT
  Age: 61 Year
  Sex: Female

DRUGS (2)
  1. GEMFIBROZIL [Suspect]
     Indication: HYPERLIPIDAEMIA
  2. INTERFERON ALFA [Interacting]
     Indication: MALIGNANT MELANOMA

REACTIONS (2)
  - DRUG INTERACTION [None]
  - HEPATITIS [None]
